FAERS Safety Report 4783741-6 (Version None)
Quarter: 2005Q3

REPORT INFORMATION
  Report Type: 
  Country: None (occurrence: None)
  Receive Date: 20050929
  Receipt Date: 20050822
  Transmission Date: 20060218
  Serious: Yes (Disabling, Other)
  Sender: FDA-Public Use
  Company Number: NL-ABBOTT-05P-114-0309038-00

PATIENT
  Sex: Male
  Weight: 97 kg

DRUGS (17)
  1. HUMIRA [Suspect]
     Indication: RHEUMATOID ARTHRITIS
     Route: 058
     Dates: start: 20041114, end: 20050628
  2. NAPROXEN [Concomitant]
     Indication: DRUG USE FOR UNKNOWN INDICATION
     Dates: start: 20030508
  3. ARTHROTEC [Concomitant]
     Indication: DRUG USE FOR UNKNOWN INDICATION
     Dates: start: 20030503, end: 20030507
  4. FOLIC ACID [Concomitant]
     Indication: DRUG USE FOR UNKNOWN INDICATION
     Dates: start: 20030515, end: 20030623
  5. METHOTREXATE [Concomitant]
     Indication: DRUG USE FOR UNKNOWN INDICATION
     Dates: start: 20030515, end: 20030623
  6. LEFLUNOMIDE [Concomitant]
     Indication: DRUG USE FOR UNKNOWN INDICATION
     Dosage: 20 - 10 - ETC
     Dates: start: 20050504
  7. LEFLUNOMIDE [Concomitant]
     Dates: start: 20050202, end: 20050504
  8. LEFLUNOMIDE [Concomitant]
     Dates: start: 20030701, end: 20050202
  9. LEFLUNOMIDE [Concomitant]
     Dates: start: 20030701
  10. PREDNISOLONE [Concomitant]
     Indication: DRUG USE FOR UNKNOWN INDICATION
     Dates: start: 20040226, end: 20040401
  11. PREDNISOLONE [Concomitant]
     Dates: start: 20030818, end: 20040226
  12. PREDNISOLONE [Concomitant]
     Dates: start: 20030623, end: 20030818
  13. PREDNISOLONE [Concomitant]
     Dates: start: 20030527, end: 20030623
  14. PREDNISOLONE [Concomitant]
     Dates: start: 20030508, end: 20030527
  15. PERINDOPRIL [Concomitant]
     Indication: DRUG USE FOR UNKNOWN INDICATION
     Dates: start: 20050628
  16. CARVEDILOL [Concomitant]
     Indication: DRUG USE FOR UNKNOWN INDICATION
     Dates: start: 20050628
  17. BUMETANIDE [Concomitant]
     Indication: DRUG USE FOR UNKNOWN INDICATION
     Dates: start: 20050628

REACTIONS (6)
  - ARRHYTHMIA [None]
  - BLOOD PRESSURE INCREASED [None]
  - CARDIOMYOPATHY [None]
  - MITRAL VALVE INCOMPETENCE [None]
  - PULMONARY VALVE INCOMPETENCE [None]
  - TRICUSPID VALVE INCOMPETENCE [None]
